FAERS Safety Report 6651895-2 (Version None)
Quarter: 2010Q1

REPORT INFORMATION
  Report Type: 
  Country: None (occurrence: None)
  Receive Date: 20100325
  Receipt Date: 20100316
  Transmission Date: 20100710
  Serious: Yes (Other)
  Sender: FDA-Public Use
  Company Number: US-JNJFOC-20100304775

PATIENT
  Age: 43 Year
  Sex: Male
  Weight: 68.04 kg

DRUGS (8)
  1. EXTRA STRENGTH TYLENOL [Suspect]
     Indication: HEADACHE
     Route: 048
  2. EXTRA STRENGTH TYLENOL [Suspect]
     Indication: BACK PAIN
     Route: 048
  3. MULTI-VITAMINS [Concomitant]
     Indication: ROUTINE HEALTH MAINTENANCE
  4. DIGOXIN [Concomitant]
     Indication: CARDIAC DISORDER
  5. AMIODARONE HCL [Concomitant]
     Indication: CARDIAC DISORDER
  6. WARFARIN SODIUM [Concomitant]
     Indication: ANTICOAGULANT THERAPY
  7. SERTRALINE HCL [Concomitant]
     Indication: ANTIDEPRESSANT THERAPY
  8. POTASSIUM [Concomitant]
     Indication: NUTRITIONAL SUPPORT

REACTIONS (1)
  - CONVULSION [None]
